FAERS Safety Report 26010785 (Version 1)
Quarter: 2025Q4

REPORT INFORMATION
  Report Type: Spontaneous
  Country: CH (occurrence: CH)
  Receive Date: 20251107
  Receipt Date: 20251107
  Transmission Date: 20260117
  Serious: Yes (Hospitalization, Disabling, Other)
  Sender: VIIV
  Company Number: CH-VIIV HEALTHCARE-CH2025GSK143894

PATIENT
  Age: 80 Year
  Sex: Male

DRUGS (14)
  1. DOLUTEGRAVIR [Suspect]
     Active Substance: DOLUTEGRAVIR
     Indication: HIV infection
     Dosage: UNK
  2. TENOFOVIR ALAFENAMIDE [Concomitant]
     Active Substance: TENOFOVIR ALAFENAMIDE
     Indication: HIV infection
     Dosage: UNK
  3. EMTRICITABINE [Concomitant]
     Active Substance: EMTRICITABINE
     Indication: HIV infection
     Dosage: UNK
  4. DARUNAVIR [Concomitant]
     Active Substance: DARUNAVIR
     Indication: HIV infection
     Dosage: UNK
  5. COBICISTAT [Concomitant]
     Active Substance: COBICISTAT
     Indication: HIV infection
     Dosage: UNK
  6. DORAVIRINE [Concomitant]
     Active Substance: DORAVIRINE
     Indication: HIV infection
     Dosage: UNK
  7. ZOLPIDEM [Concomitant]
     Active Substance: ZOLPIDEM TARTRATE
     Indication: Insomnia
     Dosage: UNK
  8. ZOPICLONE [Concomitant]
     Active Substance: ZOPICLONE
     Indication: Insomnia
     Dosage: UNK
  9. PIPAMPERONE [Concomitant]
     Active Substance: PIPAMPERONE
     Indication: Insomnia
     Dosage: UNK
  10. MIRTAZAPINE [Concomitant]
     Active Substance: MIRTAZAPINE
     Indication: Insomnia
     Dosage: UNK
  11. TRAZODONE [Concomitant]
     Active Substance: TRAZODONE HYDROCHLORIDE
     Indication: Insomnia
     Dosage: UNK
  12. TRIMIPRAMINE [Concomitant]
     Active Substance: TRIMIPRAMINE
     Indication: Insomnia
     Dosage: UNK
  13. MELATONIN [Concomitant]
     Active Substance: MELATONIN
     Indication: Insomnia
     Dosage: UNK
  14. HERBALS [Concomitant]
     Active Substance: HERBALS
     Indication: Insomnia
     Dosage: UNK

REACTIONS (4)
  - Insomnia [Recovered/Resolved]
  - Depression [Recovered/Resolved]
  - Emotional distress [Recovered/Resolved]
  - Suicidal ideation [Recovered/Resolved]
